FAERS Safety Report 20028650 (Version 1)
Quarter: 2021Q4

REPORT INFORMATION
  Report Type: Spontaneous
  Country: PT (occurrence: None)
  Receive Date: 20211103
  Receipt Date: 20211103
  Transmission Date: 20220303
  Serious: Yes (Life-Threatening, Other)
  Sender: FDA-Public Use
  Company Number: PT-Hikma Pharmaceuticals USA Inc.-PT-H14001-21-04598

PATIENT
  Age: 63 Year
  Sex: Male

DRUGS (5)
  1. KETAMINE [Suspect]
     Active Substance: KETAMINE
     Indication: Portal vein embolisation
     Dosage: UNKNOWN
     Route: 065
  2. CEFAZOLIN SODIUM [Suspect]
     Active Substance: CEFAZOLIN SODIUM
     Indication: Antibiotic prophylaxis
     Dosage: UNKNOWN
     Route: 065
  3. FENTANYL [Suspect]
     Active Substance: FENTANYL
     Indication: Portal vein embolisation
     Dosage: UNKNOWN
     Route: 065
  4. PROPOFOL [Suspect]
     Active Substance: PROPOFOL
     Indication: Portal vein embolisation
     Dosage: UNKNOWN
     Route: 065
  5. IODINE [Suspect]
     Active Substance: IODINE
     Indication: Portal vein embolisation
     Dosage: UNKNOWN
     Route: 042

REACTIONS (1)
  - Anaphylactic shock [Recovered/Resolved]
